FAERS Safety Report 6097290-9 (Version None)
Quarter: 2009Q1

REPORT INFORMATION
  Report Type: 
  Country: None (occurrence: None)
  Receive Date: 20090227
  Receipt Date: 20090225
  Transmission Date: 20090719
  Serious: Yes (Life-Threatening, Other)
  Sender: FDA-Public Use
  Company Number: FR-BRISTOL-MYERS SQUIBB COMPANY-14499347

PATIENT
  Age: 49 Year
  Sex: Male

DRUGS (3)
  1. SUSTIVA [Suspect]
     Indication: HIV INFECTION
     Route: 048
     Dates: start: 20080711, end: 20090106
  2. TRUVADA [Suspect]
     Indication: HIV INFECTION
     Dosage: DOSAGE FORM=TABS
  3. DOLIPRANE [Suspect]
     Indication: HEADACHE
     Dates: start: 20081201, end: 20090106

REACTIONS (5)
  - ENCEPHALOPATHY [None]
  - HEPATIC NECROSIS [None]
  - NAUSEA [None]
  - OVERDOSE [None]
  - VOMITING [None]
